FAERS Safety Report 8225495-7 (Version None)
Quarter: 2012Q1

REPORT INFORMATION
  Report Type: 
  Country: None (occurrence: None)
  Receive Date: 20120321
  Receipt Date: 20120306
  Transmission Date: 20120608
  Serious: No
  Sender: FDA-Public Use
  Company Number: US-ENDO PHARMACEUTICALS INC.-OPER20120288

PATIENT
  Sex: Male
  Weight: 186.14 kg

DRUGS (10)
  1. OPANA [Suspect]
  2. OPANA ER [Suspect]
     Indication: PAIN
     Route: 048
     Dates: end: 20120301
  3. OPANA ER [Suspect]
  4. OPANA [Suspect]
     Indication: ARTHRALGIA
  5. OPANA ER [Suspect]
  6. OPANA [Suspect]
     Indication: INTERVERTEBRAL DISC PROTRUSION
  7. OPANA [Suspect]
  8. OPANA ER [Suspect]
     Indication: INTERVERTEBRAL DISC PROTRUSION
  9. OPANA ER [Suspect]
     Indication: ARTHRALGIA
  10. OPANA [Suspect]
     Indication: PAIN
     Route: 048
     Dates: end: 20120301

REACTIONS (4)
  - VOMITING [None]
  - DRUG WITHDRAWAL SYNDROME [None]
  - ABDOMINAL PAIN UPPER [None]
  - DIARRHOEA [None]
